FAERS Safety Report 20219853 (Version 1)
Quarter: 2021Q4

REPORT INFORMATION
  Report Type: Report from Study
  Country: US (occurrence: US)
  Receive Date: 20211222
  Receipt Date: 20211222
  Transmission Date: 20220303
  Serious: Yes (Hospitalization, Other)
  Sender: FDA-Public Use
  Company Number: US-GILEAD-2021-0562472

PATIENT
  Sex: Female

DRUGS (1)
  1. IDELALISIB [Suspect]
     Active Substance: IDELALISIB
     Indication: Lymphocytic leukaemia
     Dosage: 100 MG, BID
     Route: 048
     Dates: start: 20210129, end: 20211129

REACTIONS (1)
  - Respiratory failure [Unknown]
